FAERS Safety Report 23356071 (Version 3)
Quarter: 2024Q1

REPORT INFORMATION
  Report Type: Report from Study
  Country: US (occurrence: US)
  Receive Date: 20240102
  Receipt Date: 20240129
  Transmission Date: 20240410
  Serious: Yes (Death, Other)
  Sender: FDA-Public Use
  Company Number: US-JNJFOC-20231274003

PATIENT
  Age: 25 Year
  Sex: Female
  Weight: 81.72 kg

DRUGS (7)
  1. SPRAVATO [Suspect]
     Active Substance: ESKETAMINE
     Indication: Depression
     Dosage: 56 MG, 2 TOTAL DOSES
     Dates: start: 20230626, end: 20230628
  2. SPRAVATO [Suspect]
     Active Substance: ESKETAMINE
     Indication: Major depression
     Dosage: 84 MG, 23 TOTAL DOSES
     Dates: start: 20230703, end: 20231018
  3. ARIPIPRAZOLE [Concomitant]
     Active Substance: ARIPIPRAZOLE
     Route: 065
  4. WELLBUTRIN [Concomitant]
     Active Substance: BUPROPION HYDROCHLORIDE
     Indication: Major depression
     Route: 065
     Dates: start: 20220228, end: 20231020
  5. CLONAZEPAM [Concomitant]
     Active Substance: CLONAZEPAM
     Dosage: AT 5 PM, ONCE A DAY, AS NEEDED (ADVISED NOT TO TAKE ON TREATMENT DAY)
     Route: 065
  6. TRINTELLIX [Concomitant]
     Active Substance: VORTIOXETINE HYDROBROMIDE
     Indication: Major depression
     Route: 065
     Dates: start: 20220228, end: 20231020
  7. YAZ [Concomitant]
     Active Substance: DROSPIRENONE\ETHINYL ESTRADIOL
     Indication: Contraception
     Dates: start: 20220411, end: 20231020

REACTIONS (2)
  - Completed suicide [Fatal]
  - Suicidal ideation [Unknown]

NARRATIVE: CASE EVENT DATE: 20230101
